FAERS Safety Report 8150607-3 (Version None)
Quarter: 2012Q1

REPORT INFORMATION
  Report Type: 
  Country: None (occurrence: None)
  Receive Date: 20120220
  Receipt Date: 20120207
  Transmission Date: 20120608
  Serious: Yes (Hospitalization, Other)
  Sender: FDA-Public Use
  Company Number: PHEH2011US012540

PATIENT
  Sex: Male
  Weight: 103 kg

DRUGS (7)
  1. VITAMIN D [Concomitant]
     Route: 048
  2. FISH OIL [Concomitant]
     Dosage: 1000 MG, BID
     Route: 048
  3. TRICOR [Concomitant]
     Indication: LIPIDS
     Dosage: 145 MG, QD
     Route: 048
  4. ZIAC [Concomitant]
     Indication: BLOOD PRESSURE
     Dosage: 6.25 MG, QD
     Route: 048
  5. CRESTOR [Concomitant]
     Indication: BLOOD CHOLESTEROL
     Dosage: 10 MG, EVERY OTHER DAY
     Route: 048
  6. GLEEVEC [Suspect]
     Indication: GASTROINTESTINAL STROMAL TUMOUR
     Dosage: 100 MG, QD
     Dates: start: 20060601
  7. GLEEVEC [Suspect]
     Dosage: 100 MG, BID
     Route: 048
     Dates: start: 20110314

REACTIONS (9)
  - DEHYDRATION [None]
  - CAMPYLOBACTER GASTROENTERITIS [None]
  - VOMITING [None]
  - FOOD POISONING [None]
  - PYREXIA [None]
  - DIARRHOEA [None]
  - RENAL FAILURE [None]
  - NAUSEA [None]
  - BLOOD POTASSIUM DECREASED [None]
